FAERS Safety Report 9298783 (Version 1)
Quarter: 2013Q2

REPORT INFORMATION
  Report Type: Spontaneous
  Country: IT (occurrence: IT)
  Receive Date: 20130520
  Receipt Date: 20130520
  Transmission Date: 20140414
  Serious: Yes (Life-Threatening)
  Sender: FDA-Public Use
  Company Number: IT-GLAXOSMITHKLINE-B0892940A

PATIENT
  Age: 76 Year
  Sex: Female

DRUGS (9)
  1. ZANTAC [Suspect]
     Indication: PRODUCT USED FOR UNKNOWN INDICATION
     Dosage: 50MG PER DAY
     Route: 042
     Dates: start: 20130219, end: 20130219
  2. PANTORC [Concomitant]
     Dosage: 40MG PER DAY
     Route: 048
  3. CLEXANE [Concomitant]
     Dosage: 8000IU PER DAY
     Route: 058
  4. METFORMINA [Concomitant]
     Dosage: 3000MG PER DAY
     Route: 048
  5. NORVASC [Concomitant]
     Dosage: 10MG PER DAY
     Route: 048
  6. LANOXIN [Concomitant]
     Dosage: .25MG PER DAY
     Route: 048
  7. COMBISARTAN [Concomitant]
  8. XANAX [Concomitant]
     Dosage: 150MG PER DAY
     Route: 048
  9. DIAMICRON [Concomitant]
     Dosage: 30MG PER DAY
     Route: 048

REACTIONS (4)
  - Anaphylactic reaction [Recovered/Resolved]
  - Rash [Recovered/Resolved]
  - Dyspnoea [Recovered/Resolved]
  - Malaise [Recovered/Resolved]
